FAERS Safety Report 4908980-2 (Version None)
Quarter: 2006Q1

REPORT INFORMATION
  Report Type: 
  Country: None (occurrence: None)
  Receive Date: 20060209
  Receipt Date: 20031201
  Transmission Date: 20060701
  Serious: Yes (Life-Threatening, Hospitalization)
  Sender: FDA-Public Use
  Company Number: HQ2418322JUN2001

PATIENT
  Age: 19 Year
  Sex: Female

DRUGS (3)
  1. MYLOTARG [Suspect]
     Indication: ACUTE MYELOID LEUKAEMIA
     Dosage: 18.6 MG ONE TIME PER ONE DOSE, INTRAVENOUS
     Route: 042
     Dates: start: 20010608, end: 20010608
  2. CYTARABINE [Suspect]
     Indication: ACUTE MYELOID LEUKAEMIA
     Dosage: 416 MG 1X PER 1 DAY INTRAVENOUS
     Route: 042
     Dates: start: 20010605, end: 20010611
  3. DAUNORUBICIN HCL [Suspect]
     Indication: ACUTE MYELOID LEUKAEMIA
     Dosage: 84 MG 1X PER 1 DAY INTRAVENOUS
     Route: 042
     Dates: start: 20010605, end: 20010607

REACTIONS (18)
  - ABDOMINAL PAIN UPPER [None]
  - ANOREXIA [None]
  - ASPARTATE AMINOTRANSFERASE INCREASED [None]
  - BLOOD BILIRUBIN INCREASED [None]
  - CONJUNCTIVAL HAEMORRHAGE [None]
  - DISSEMINATED INTRAVASCULAR COAGULATION [None]
  - DYSPNOEA [None]
  - FEBRILE NEUTROPENIA [None]
  - FLUID OVERLOAD [None]
  - GINGIVAL BLEEDING [None]
  - HAEMATEMESIS [None]
  - HEPATOMEGALY [None]
  - HYPERTENSION [None]
  - OXYGEN SATURATION DECREASED [None]
  - THROMBOCYTOPENIA [None]
  - URINARY TRACT INFECTION ENTEROCOCCAL [None]
  - VAGINAL HAEMORRHAGE [None]
  - WEIGHT INCREASED [None]
